FAERS Safety Report 14497385 (Version 4)
Quarter: 2018Q1

REPORT INFORMATION
  Report Type: Report from Study
  Country: None (occurrence: US)
  Receive Date: 20180207
  Receipt Date: 20180306
  Transmission Date: 20180509
  Serious: Yes (Hospitalization)
  Sender: FDA-Public Use
  Company Number: US-ABBVIE-17K-163-2187995-00

PATIENT
  Age: 15 Year
  Sex: Female

DRUGS (5)
  1. HUMIRA [Suspect]
     Active Substance: ADALIMUMAB
     Indication: CROHN^S DISEASE
     Dosage: ON DAY 8
     Route: 058
     Dates: start: 20171129, end: 20171129
  2. HUMIRA [Suspect]
     Active Substance: ADALIMUMAB
     Dosage: DAY 21
     Route: 058
     Dates: start: 20171213, end: 20171227
  3. HUMIRA [Suspect]
     Active Substance: ADALIMUMAB
     Indication: CROHN^S DISEASE
     Dosage: DAY 1
     Route: 058
     Dates: start: 20171122, end: 20171122
  4. HUMIRA [Suspect]
     Active Substance: ADALIMUMAB
     Dosage: DAY 14
     Route: 058
     Dates: start: 20171206, end: 20171206
  5. HUMIRA [Suspect]
     Active Substance: ADALIMUMAB
     Route: 058
     Dates: start: 20180227

REACTIONS (16)
  - Inflammation [Not Recovered/Not Resolved]
  - Nasal discomfort [Unknown]
  - Abdominal pain upper [Recovering/Resolving]
  - Diarrhoea [Unknown]
  - Influenza [Unknown]
  - Respiratory tract congestion [Not Recovered/Not Resolved]
  - Malaise [Unknown]
  - Frequent bowel movements [Not Recovered/Not Resolved]
  - Pain [Unknown]
  - Pyrexia [Unknown]
  - Gastroenteritis viral [Not Recovered/Not Resolved]
  - Gastric disorder [Not Recovered/Not Resolved]
  - White blood cell count increased [Not Recovered/Not Resolved]
  - Pneumonia [Not Recovered/Not Resolved]
  - Gastrointestinal disorder [Not Recovered/Not Resolved]
  - Viral infection [Unknown]

NARRATIVE: CASE EVENT DATE: 2017
